FAERS Safety Report 9477967 (Version 1)
Quarter: 2013Q4

REPORT INFORMATION
  Report Type: Spontaneous
  Country: US (occurrence: None)
  Receive Date: 20130826
  Receipt Date: 20130826
  Transmission Date: 20140711
  Serious: Yes (Disabling, Other)
  Sender: FDA-Public Use
  Company Number: None

PATIENT
  Age: 53 Year
  Sex: Male

DRUGS (5)
  1. AMPYRA [Suspect]
     Indication: GAIT DISTURBANCE
     Dosage: 10 MG,  Q 12 HRS
     Dates: start: 201105
  2. CYMBALTA (DULOXETINE HYDROCHLORIDE) [Concomitant]
  3. BACLOFEN (BACLOFEN) [Concomitant]
  4. LEXAPRO (ESCITALOPRAM OXALATE) [Concomitant]
  5. PROVIGIL (MODAFINIL) [Concomitant]

REACTIONS (5)
  - Movement disorder [None]
  - Dysstasia [None]
  - Abasia [None]
  - Wheelchair user [None]
  - Drug ineffective [None]
